FAERS Safety Report 17713507 (Version 1)
Quarter: 2020Q2

REPORT INFORMATION
  Report Type: Spontaneous
  Country: ES (occurrence: ES)
  Receive Date: 20200427
  Receipt Date: 20200427
  Transmission Date: 20200714
  Serious: Yes (Hospitalization)
  Sender: FDA-Public Use
  Company Number: ES-TEVA-2020-ES-1226977

PATIENT
  Age: 59 Year
  Sex: Male

DRUGS (4)
  1. ETUMINA [Suspect]
     Active Substance: CLOTHIAPINE
     Dosage: 40 MILLIGRAM DAILY;
     Route: 048
     Dates: start: 20190602, end: 20190611
  2. NOLOTIL 575 MG CAPSULAS DURAS, 20 CAPSULAS [Suspect]
     Active Substance: METAMIZOLE MAGNESIUM
     Dosage: 1-1-1, 575 MG 8 HOURS
     Route: 048
     Dates: start: 20190602, end: 20190611
  3. TRAMADOL (2389A) [Suspect]
     Active Substance: TRAMADOL
     Dosage: 50 MILLIGRAM DAILY;
     Route: 048
     Dates: start: 20190602, end: 20190611
  4. BISOPROLOL (2328A) [Suspect]
     Active Substance: BISOPROLOL
     Dosage: 2.5 MILLIGRAM DAILY;
     Route: 048
     Dates: start: 20190602, end: 20190611

REACTIONS (1)
  - Intestinal pseudo-obstruction [Recovered/Resolved]

NARRATIVE: CASE EVENT DATE: 20190611
